FAERS Safety Report 6557321-6 (Version None)
Quarter: 2010Q1

REPORT INFORMATION
  Report Type: 
  Country: None (occurrence: None)
  Receive Date: 20100129
  Receipt Date: 20100115
  Transmission Date: 20100710
  Serious: Yes (Hospitalization)
  Sender: FDA-Public Use
  Company Number: RS-BAYER-200829081GPV

PATIENT
  Age: 41 Year
  Sex: Female
  Weight: 70 kg

DRUGS (5)
  1. CAMPATH MS [Suspect]
     Indication: MULTIPLE SCLEROSIS
     Route: 042
     Dates: start: 20080707, end: 20080711
  2. DIPYRONE INJ [Concomitant]
     Route: 065
  3. DICLOFENAC SODIUM [Concomitant]
     Route: 065
  4. HEFEROL [Concomitant]
     Indication: ANAEMIA
     Dosage: TOTAL DAILY DOSE: 700 MG
     Route: 048
     Dates: start: 20081025, end: 20081124
  5. HEFEROL [Concomitant]
     Dosage: TOTAL DAILY DOSE: 350 MG
     Route: 048
     Dates: start: 20081125

REACTIONS (1)
  - INCREASED TENDENCY TO BRUISE [None]
